FAERS Safety Report 23067844 (Version 1)
Quarter: 2023Q4

REPORT INFORMATION
  Report Type: Spontaneous
  Country: CN (occurrence: CN)
  Receive Date: 20231016
  Receipt Date: 20231016
  Transmission Date: 20240110
  Serious: Yes (Other)
  Sender: FDA-Public Use
  Company Number: CN-002147023-NVSC2023CN221143

PATIENT

DRUGS (1)
  1. COSENTYX [Suspect]
     Active Substance: SECUKINUMAB
     Indication: Product used for unknown indication
     Dosage: UNK
     Route: 065

REACTIONS (4)
  - Systemic lupus erythematosus [Recovering/Resolving]
  - Lupus nephritis [Recovering/Resolving]
  - Blood urine present [Unknown]
  - Psoriasis [Unknown]

NARRATIVE: CASE EVENT DATE: 20230301
